FAERS Safety Report 10066207 (Version 2)
Quarter: 2014Q2

REPORT INFORMATION
  Report Type: Spontaneous
  Country: JP (occurrence: JP)
  Receive Date: 20140408
  Receipt Date: 20140425
  Transmission Date: 20141212
  Serious: Yes (Death, Hospitalization, Other)
  Sender: FDA-Public Use
  Company Number: PHHY2014JP039234

PATIENT
  Age: 43 Year
  Sex: Male

DRUGS (5)
  1. GLIVEC [Suspect]
     Indication: PULMONARY ARTERIAL HYPERTENSION
     Dosage: 100 MG, QD
  2. GLIVEC [Suspect]
     Indication: OFF LABEL USE
     Dosage: 150 MG, QD
  3. BOSENTAN [Suspect]
     Indication: PULMONARY ARTERIAL HYPERTENSION
  4. SILDENAFIL [Suspect]
     Indication: PULMONARY ARTERIAL HYPERTENSION
  5. EPOPROSTENOL [Suspect]
     Indication: PULMONARY ARTERIAL HYPERTENSION
     Dosage: 26 NG//KG/MIN
     Route: 042

REACTIONS (9)
  - Death [Fatal]
  - Dyspnoea [Unknown]
  - Pulmonary arterial pressure increased [Unknown]
  - Pulmonary oedema [Not Recovered/Not Resolved]
  - Haemangioma [Not Recovered/Not Resolved]
  - Cardiac failure [Not Recovered/Not Resolved]
  - Cardiomegaly [Not Recovered/Not Resolved]
  - Therapeutic response decreased [Unknown]
  - Drug ineffective [Unknown]
